FAERS Safety Report 8154389-0 (Version None)
Quarter: 2012Q1

REPORT INFORMATION
  Report Type: 
  Country: None (occurrence: None)
  Receive Date: 20120203
  Receipt Date: 20120125
  Transmission Date: 20120608
  Serious: Yes (Hospitalization, Other)
  Sender: FDA-Public Use
  Company Number: 2012030939

PATIENT
  Age: 9 Year
  Sex: Female
  Weight: 20.684 kg

DRUGS (3)
  1. ONDANSETRON [Concomitant]
  2. AMOXICILLIN [Concomitant]
  3. HIZENTRA [Suspect]
     Indication: SPINOCEREBELLAR DISORDER
     Dosage: 2 G 1X/WEEK, 2 GM 10 MG VIAL; 2 SITES OVER 1 HOUR SUBCUTANEOUS
     Route: 058

REACTIONS (2)
  - KIDNEY INFECTION [None]
  - TOOTH INFECTION [None]
